FAERS Safety Report 5887451-3 (Version None)
Quarter: 2008Q3

REPORT INFORMATION
  Report Type: 
  Country: None (occurrence: None)
  Receive Date: 20080917
  Receipt Date: 20080917
  Transmission Date: 20090109
  Serious: Yes (Other)
  Sender: FDA-Public Use
  Company Number: None

PATIENT
  Age: 55 Year
  Sex: Male
  Weight: 90.7194 kg

DRUGS (3)
  1. AMBIEN CR [Suspect]
     Indication: INSOMNIA
     Dosage: 12.5 MG PO QHS
     Route: 048
     Dates: start: 20071101, end: 20080901
  2. CLONAZEPAM [Concomitant]
  3. LEXAPRO [Concomitant]

REACTIONS (4)
  - ABNORMAL SLEEP-RELATED EVENT [None]
  - AMNESIA [None]
  - CONTUSION [None]
  - PERIORBITAL HAEMATOMA [None]
